FAERS Safety Report 7505514 (Version 3)
Quarter: 2013Q1

REPORT INFORMATION
  Report Type: Report from Study
  Country: JP (occurrence: JP)
  Receive Date: 20100728
  Receipt Date: 20130327
  Transmission Date: 20140127
  Serious: Yes (Hospitalization, Disabling)
  Sender: FDA-Public Use
  Company Number: JP-BRISTOL-MYERS SQUIBB COMPANY-15204167

PATIENT
  Age: 70 Year
  Sex: Male
  Weight: 63 kg

DRUGS (3)
  1. SPRYCEL [Suspect]
     Indication: ACUTE LYMPHOCYTIC LEUKAEMIA
     Dosage: 9JUN-31AUG2010-70MG,1SEP-14OCT2010-50MG, 15OCT-24NOV2010-90MG/2 PER 1 DAY
     Route: 048
     Dates: start: 20100609
  2. PLETAAL [Concomitant]
     Indication: PROPHYLAXIS
     Route: 048
     Dates: start: 20100712
  3. PLAVIX TABS [Concomitant]
     Indication: PROPHYLAXIS
     Route: 048
     Dates: start: 20100817

REACTIONS (4)
  - Retinal artery occlusion [Not Recovered/Not Resolved]
  - Cerebral infarction [Not Recovered/Not Resolved]
  - Anaemia [Recovered/Resolved]
  - Diverticulum intestinal haemorrhagic [Recovered/Resolved]
